FAERS Safety Report 15106171 (Version 1)
Quarter: 2018Q3

REPORT INFORMATION
  Report Type: Spontaneous
  Country: JP (occurrence: JP)
  Receive Date: 20180704
  Receipt Date: 20180704
  Transmission Date: 20181010
  Serious: Yes (Other)
  Sender: FDA-Public Use
  Company Number: JP-SUN PHARMACEUTICAL INDUSTRIES LTD-2018RR-177211

PATIENT
  Age: 54 Year
  Sex: Male

DRUGS (14)
  1. CALCIUM FOLINAT [Suspect]
     Active Substance: LEUCOVORIN CALCIUM
     Dosage: 17 COURSES
     Route: 065
  2. CALCIUM FOLINAT [Suspect]
     Active Substance: LEUCOVORIN CALCIUM
     Dosage: 23 COURSES
     Route: 065
  3. FLUOROURACIL. [Suspect]
     Active Substance: FLUOROURACIL
     Dosage: 11 COURSES
     Route: 065
  4. OXALIPLATIN. [Suspect]
     Active Substance: OXALIPLATIN
     Dosage: 17 COURSES
     Route: 065
  5. BEVACIZUMAB. [Suspect]
     Active Substance: BEVACIZUMAB
     Dosage: 11 COURSES
     Route: 065
  6. FLUOROURACIL. [Suspect]
     Active Substance: FLUOROURACIL
     Dosage: 23 COURSES
     Route: 065
  7. PANITUMUMAB [Suspect]
     Active Substance: PANITUMUMAB
     Indication: RECTOSIGMOID CANCER STAGE IV
     Dosage: 9 COURSES
     Route: 065
  8. IRINOTECAN [Suspect]
     Active Substance: IRINOTECAN
     Indication: RECTOSIGMOID CANCER STAGE IV
     Dosage: 11 COURSES
     Route: 065
  9. OXALIPLATIN. [Suspect]
     Active Substance: OXALIPLATIN
     Indication: RECTOSIGMOID CANCER STAGE IV
     Dosage: 4 COURSES
     Route: 065
     Dates: start: 201009
  10. CALCIUM FOLINAT [Suspect]
     Active Substance: LEUCOVORIN CALCIUM
     Indication: RECTOSIGMOID CANCER STAGE IV
     Dosage: 4 COURSES
     Route: 065
     Dates: start: 201009
  11. CALCIUM FOLINAT [Suspect]
     Active Substance: LEUCOVORIN CALCIUM
     Dosage: 11 COURSES
     Route: 065
  12. BEVACIZUMAB. [Suspect]
     Active Substance: BEVACIZUMAB
     Indication: RECTOSIGMOID CANCER STAGE IV
     Dosage: 4 COURSES
     Route: 065
     Dates: start: 201009
  13. FLUOROURACIL. [Suspect]
     Active Substance: FLUOROURACIL
     Dosage: 17 COURSES
     Route: 065
  14. FLUOROURACIL. [Suspect]
     Active Substance: FLUOROURACIL
     Indication: RECTOSIGMOID CANCER STAGE IV
     Dosage: 4 COURSES
     Route: 065
     Dates: start: 201009

REACTIONS (6)
  - Neuropathy peripheral [Unknown]
  - Rash pustular [Unknown]
  - Paronychia [Unknown]
  - Disease progression [Unknown]
  - Hypersensitivity [Unknown]
  - Rash generalised [Unknown]
